FAERS Safety Report 6999059-7 (Version None)
Quarter: 2010Q3

REPORT INFORMATION
  Report Type: 
  Country: None (occurrence: None)
  Receive Date: 20100920
  Receipt Date: 20100907
  Transmission Date: 20110219
  Serious: Yes (Hospitalization, Other)
  Sender: FDA-Public Use
  Company Number: US-ELI_LILLY_AND_COMPANY-US201009002876

PATIENT

DRUGS (2)
  1. FORTEO [Suspect]
     Indication: OSTEOPOROSIS
     Dosage: 20 UG, DAILY (1/D)
     Dates: start: 20100601, end: 20100801
  2. FORTEO [Suspect]
     Dates: start: 20100831

REACTIONS (3)
  - NERVE INJURY [None]
  - RENAL NEOPLASM [None]
  - VASCULAR GRAFT [None]
